FAERS Safety Report 22172734 (Version 3)
Quarter: 2023Q2

REPORT INFORMATION
  Report Type: Spontaneous
  Country: US (occurrence: US)
  Receive Date: 20230404
  Receipt Date: 20230601
  Transmission Date: 20230721
  Serious: No
  Sender: FDA-Public Use
  Company Number: US-PFIZER INC-PV202300060613

PATIENT
  Age: 50 Year
  Sex: Male
  Weight: 84.82 kg

DRUGS (1)
  1. DEPO-TESTOSTERONE [Suspect]
     Active Substance: TESTOSTERONE CYPIONATE
     Indication: Blood testosterone decreased
     Dosage: 0.88 ML, CYCLIC (EVERY 14 DAYS BY INJECTION)

REACTIONS (4)
  - Poor quality product administered [Unknown]
  - Product deposit [Unknown]
  - Injection site pain [Unknown]
  - Anxiety [Unknown]

NARRATIVE: CASE EVENT DATE: 20230330
